FAERS Safety Report 12666255 (Version 1)
Quarter: 2016Q3

REPORT INFORMATION
  Report Type: Spontaneous
  Country: US (occurrence: US)
  Receive Date: 20160818
  Receipt Date: 20160818
  Transmission Date: 20161109
  Serious: No
  Sender: FDA-Public Use
  Company Number: US-JAZZ-2016-US-005708

PATIENT
  Sex: Female

DRUGS (25)
  1. XYREM [Suspect]
     Active Substance: SODIUM OXYBATE
     Indication: NARCOLEPSY
     Dosage: 3 G, BID
     Route: 048
     Dates: start: 201106, end: 2011
  2. FLUOXETINE [Concomitant]
     Active Substance: FLUOXETINE HYDROCHLORIDE
  3. LYRICA [Concomitant]
     Active Substance: PREGABALIN
  4. XYREM [Suspect]
     Active Substance: SODIUM OXYBATE
     Dosage: 3.75 G, BID
     Route: 048
     Dates: start: 201509, end: 2016
  5. FUROSEMIDE. [Concomitant]
     Active Substance: FUROSEMIDE
  6. NORCO [Concomitant]
     Active Substance: ACETAMINOPHEN\HYDROCODONE BITARTRATE
  7. ADDERALL [Concomitant]
     Active Substance: AMPHETAMINE ASPARTATE\AMPHETAMINE SULFATE\DEXTROAMPHETAMINE SACCHARATE\DEXTROAMPHETAMINE SULFATE
  8. ESTROGEN/METHYLTES [Concomitant]
     Active Substance: ESTROGENS\METHYLTESTOSTERONE
  9. VYTORIN [Concomitant]
     Active Substance: EZETIMIBE\SIMVASTATIN
  10. CALCIUM CITRATE [Concomitant]
     Active Substance: CALCIUM CITRATE
  11. TRICOR [Concomitant]
     Active Substance: FENOFIBRATE
  12. TRIAMTERENE AND HYDROCHLOROTHIAZIDE [Concomitant]
     Active Substance: HYDROCHLOROTHIAZIDE\TRIAMTERENE
  13. SYNTHROID [Concomitant]
     Active Substance: LEVOTHYROXINE SODIUM
  14. TIZANIDINE HCL [Concomitant]
     Active Substance: TIZANIDINE HYDROCHLORIDE
  15. ESTAZOLAM. [Concomitant]
     Active Substance: ESTAZOLAM
  16. OXAZEPAM. [Concomitant]
     Active Substance: OXAZEPAM
  17. PREMARIN [Concomitant]
     Active Substance: ESTROGENS, CONJUGATED
  18. TOLTERODINE TARTRATE. [Concomitant]
     Active Substance: TOLTERODINE TARTRATE
  19. XYREM [Suspect]
     Active Substance: SODIUM OXYBATE
     Indication: CATAPLEXY
     Dosage: 3 G, BID
     Route: 048
     Dates: start: 201505, end: 201509
  20. FENTANYL. [Concomitant]
     Active Substance: FENTANYL
  21. LISINOPRIL. [Concomitant]
     Active Substance: LISINOPRIL
  22. MODAFINIL. [Concomitant]
     Active Substance: MODAFINIL
  23. FENTANYL CITRATE. [Concomitant]
     Active Substance: FENTANYL CITRATE
  24. VITAMIN D [Concomitant]
     Active Substance: CHOLECALCIFEROL
  25. CELEBREX [Concomitant]
     Active Substance: CELECOXIB

REACTIONS (1)
  - Unevaluable event [Unknown]
